FAERS Safety Report 10020940 (Version 1)
Quarter: 2014Q1

REPORT INFORMATION
  Report Type: Report from Study
  Country: DE (occurrence: DE)
  Receive Date: 20140319
  Receipt Date: 20140319
  Transmission Date: 20141002
  Serious: Yes (Other)
  Sender: FDA-Public Use
  Company Number: DE-CELGENEUS-062-50794-14030574

PATIENT
  Age: 82 Year
  Sex: Male
  Weight: 85 kg

DRUGS (11)
  1. VIDAZA [Suspect]
     Indication: REFRACTORY ANAEMIA WITH AN EXCESS OF BLASTS
     Route: 058
     Dates: start: 20130610, end: 20130801
  2. VIDAZA [Suspect]
     Indication: MYELODYSPLASTIC SYNDROME
     Route: 041
     Dates: start: 20130910, end: 20130918
  3. VIDAZA [Suspect]
     Route: 041
     Dates: start: 20131125, end: 20140115
  4. VIDAZA [Suspect]
     Route: 041
     Dates: start: 20140204, end: 20140212
  5. AMLODIPINE [Concomitant]
     Indication: HYPERTENSION
     Route: 065
     Dates: start: 2011
  6. ACICLOVIR [Concomitant]
     Indication: INFECTION PROPHYLAXIS
     Dosage: 400 MILLIGRAM
     Route: 065
     Dates: start: 20130610
  7. AMPHOTERICIN B [Concomitant]
     Indication: INFECTION PROPHYLAXIS
     Dosage: PIPET
     Route: 065
     Dates: start: 20130610
  8. COTRIMOXAZOLE [Concomitant]
     Indication: INFECTION PROPHYLAXIS
     Dosage: 2 TABLET
     Route: 048
     Dates: start: 20130610
  9. GRANISETRON [Concomitant]
     Indication: VOMITING
     Route: 065
     Dates: start: 20130610
  10. ONDANSETRON [Concomitant]
     Indication: VOMITING
     Route: 065
     Dates: start: 20130610
  11. MACROGOL [Concomitant]
     Indication: CONSTIPATION
     Route: 065
     Dates: start: 20130611

REACTIONS (1)
  - Hyponatraemia [Recovered/Resolved]
